FAERS Safety Report 18589209 (Version 1)
Quarter: 2020Q4

REPORT INFORMATION
  Report Type: Report from Study
  Country: US (occurrence: US)
  Receive Date: 20201208
  Receipt Date: 20201208
  Transmission Date: 20210114
  Serious: Yes (Life-Threatening, Hospitalization, Other)
  Sender: FDA-Public Use
  Company Number: US-SA-2016SA107000

PATIENT

DRUGS (3)
  1. CLONAZEPAM. [Suspect]
     Active Substance: CLONAZEPAM
     Dosage: UNK
     Route: 065
  2. HYDROCODONE [Suspect]
     Active Substance: HYDROCODONE
     Dosage: UNK
     Route: 065
  3. ALEMTUZUMAB [Suspect]
     Active Substance: ALEMTUZUMAB
     Indication: MULTIPLE SCLEROSIS
     Dosage: 12 MG,QD
     Route: 041
     Dates: start: 20160530, end: 20160603

REACTIONS (33)
  - Vision blurred [Not Recovered/Not Resolved]
  - Headache [Not Recovered/Not Resolved]
  - Micturition urgency [Unknown]
  - Diabetic ketoacidosis [Not Recovered/Not Resolved]
  - Condition aggravated [Not Recovered/Not Resolved]
  - Blood glucose abnormal [Not Recovered/Not Resolved]
  - Gait disturbance [Not Recovered/Not Resolved]
  - Urinary retention [Recovering/Resolving]
  - Pruritus [Not Recovered/Not Resolved]
  - Rash [Unknown]
  - Intentional overdose [Unknown]
  - Aphonia [Not Recovered/Not Resolved]
  - Cognitive disorder [Unknown]
  - Emotional disorder [Not Recovered/Not Resolved]
  - Depression [Not Recovered/Not Resolved]
  - Oropharyngeal pain [Not Recovered/Not Resolved]
  - Paraesthesia [Not Recovered/Not Resolved]
  - Nausea [Not Recovered/Not Resolved]
  - Bacterial infection [Not Recovered/Not Resolved]
  - Memory impairment [Not Recovered/Not Resolved]
  - Diplopia [Not Recovered/Not Resolved]
  - Back pain [Not Recovered/Not Resolved]
  - Pollakiuria [Unknown]
  - Dyschezia [Not Recovered/Not Resolved]
  - Sepsis [Not Recovered/Not Resolved]
  - Vomiting [Not Recovered/Not Resolved]
  - Urinary incontinence [Unknown]
  - Suicide attempt [Unknown]
  - Urinary tract infection [Unknown]
  - Bladder dilatation [Recovering/Resolving]
  - Dysgraphia [Unknown]
  - Visual impairment [Not Recovered/Not Resolved]
  - Fatigue [Not Recovered/Not Resolved]

NARRATIVE: CASE EVENT DATE: 2016
